FAERS Safety Report 13151084 (Version 2)
Quarter: 2017Q1

REPORT INFORMATION
  Report Type: Spontaneous
  Country: ES (occurrence: ES)
  Receive Date: 20170125
  Receipt Date: 20170208
  Transmission Date: 20170428
  Serious: Yes (Other)
  Sender: FDA-Public Use
  Company Number: ES-JNJFOC-20170117165

PATIENT
  Age: 8 Year
  Sex: Female

DRUGS (2)
  1. CONCERTA [Suspect]
     Active Substance: METHYLPHENIDATE HYDROCHLORIDE
     Indication: ATTENTION DEFICIT/HYPERACTIVITY DISORDER
     Dosage: 0.8 MG/KG/DAY (50/50 SHORT AND PROLONGED ACTION)
     Route: 065
  2. RUBIFEN [Suspect]
     Active Substance: METHYLPHENIDATE
     Indication: ATTENTION DEFICIT/HYPERACTIVITY DISORDER
     Dosage: 0.8 MG/KG/DAY (50/50 SHORT AND PROLONGED ACTION)
     Route: 065

REACTIONS (1)
  - Alice in wonderland syndrome [Unknown]
